FAERS Safety Report 15624579 (Version 10)
Quarter: 2020Q1

REPORT INFORMATION
  Report Type: Report from Study
  Country: TW (occurrence: TW)
  Receive Date: 20181116
  Receipt Date: 20200113
  Transmission Date: 20200409
  Serious: Yes (Death, Hospitalization, Other)
  Sender: FDA-Public Use
  Company Number: TW-INCYTE CORPORATION-2018IN011273

PATIENT

DRUGS (5)
  1. JAKAVI [Suspect]
     Active Substance: RUXOLITINIB
     Indication: MYELOFIBROSIS
     Dosage: 10 MG, BID
     Route: 048
     Dates: start: 20180823, end: 20181108
  2. JAKAVI [Suspect]
     Active Substance: RUXOLITINIB
     Dosage: 20 MG, UNK
     Route: 048
     Dates: start: 20190307
  3. JAKAVI [Suspect]
     Active Substance: RUXOLITINIB
     Dosage: 20 MG, UNK
     Route: 048
     Dates: start: 20181115, end: 20190221
  4. JAKAVI [Suspect]
     Active Substance: RUXOLITINIB
     Dosage: 5 MG, BID
     Route: 048
     Dates: start: 20190621, end: 20190721
  5. JAKAVI [Suspect]
     Active Substance: RUXOLITINIB
     Dosage: 10 MG, UNK
     Route: 048
     Dates: start: 20190412

REACTIONS (56)
  - Productive cough [Not Recovered/Not Resolved]
  - Flank pain [Recovering/Resolving]
  - Haemoglobin decreased [Recovering/Resolving]
  - Vascular calcification [Unknown]
  - Pneumonia [Recovered/Resolved]
  - C-reactive protein increased [Unknown]
  - Cough [Unknown]
  - Pruritus [Unknown]
  - Malaise [Recovered/Resolved]
  - Haemochromatosis [Unknown]
  - Neutropenia [Fatal]
  - Acute kidney injury [Recovered/Resolved]
  - Urine output decreased [Unknown]
  - Hepatosplenomegaly [Not Recovered/Not Resolved]
  - Hyperuricaemia [Unknown]
  - Lung infiltration [Unknown]
  - Carbuncle [Recovered/Resolved]
  - Osteosclerosis [Unknown]
  - Platelet count decreased [Recovered/Resolved]
  - Joint range of motion decreased [Unknown]
  - Bronchitis [Unknown]
  - Cardiac failure congestive [Unknown]
  - Histoplasmosis [Recovering/Resolving]
  - Leukopenia [Recovered/Resolved]
  - White blood cell count decreased [Not Recovered/Not Resolved]
  - Cough [Recovered/Resolved]
  - Oedema [Unknown]
  - Mycobacterium test positive [Unknown]
  - Thrombocytopenia [Fatal]
  - Wound abscess [Not Recovered/Not Resolved]
  - Chronic kidney disease [Recovered/Resolved]
  - Cardiomegaly [Unknown]
  - Chest discomfort [Recovered/Resolved]
  - Lung consolidation [Unknown]
  - Osteoarthritis [Unknown]
  - Pyrexia [Recovered/Resolved]
  - Respiratory failure [Unknown]
  - Oropharyngeal pain [Recovered/Resolved]
  - Asthenia [Not Recovered/Not Resolved]
  - Haemolytic anaemia [Unknown]
  - Blood creatinine increased [Recovered/Resolved]
  - Dry skin [Unknown]
  - Pyrexia [Recovered/Resolved]
  - Hypertension [Unknown]
  - Leukopenia [Fatal]
  - Pain in extremity [Unknown]
  - Pneumonia fungal [Fatal]
  - Lung infiltration [Recovered/Resolved]
  - Thalassaemia [Unknown]
  - Urinary tract infection [Recovered/Resolved]
  - Atelectasis [Unknown]
  - Chills [Unknown]
  - Dysuria [Unknown]
  - Wound [Unknown]
  - Spleen disorder [Unknown]
  - Musculoskeletal pain [Unknown]

NARRATIVE: CASE EVENT DATE: 20180918
